FAERS Safety Report 17175409 (Version 1)
Quarter: 2019Q4

REPORT INFORMATION
  Report Type: Spontaneous
  Country: US (occurrence: US)
  Receive Date: 20191219
  Receipt Date: 20191219
  Transmission Date: 20200122
  Serious: No
  Sender: FDA-Public Use
  Company Number: US-UCBSA-114429

PATIENT
  Age: 48 Year
  Sex: Female

DRUGS (1)
  1. CIMZIA [Suspect]
     Active Substance: CERTOLIZUMAB PEGOL
     Indication: RHEUMATOID ARTHRITIS
     Dosage: 76447(3 KITS WITH THIS LOT NUMBER) AND 80397 EXPIRY DATE:DEC-2013
     Dates: start: 20110302, end: 201309

REACTIONS (6)
  - Infection susceptibility increased [Not Recovered/Not Resolved]
  - Gingivitis [Recovered/Resolved]
  - Vulvovaginal rash [Not Recovered/Not Resolved]
  - Hypersensitivity [Recovered/Resolved]
  - Exfoliative rash [Recovered/Resolved]
  - Menstruation delayed [Recovered/Resolved]

NARRATIVE: CASE EVENT DATE: 201106
